FAERS Safety Report 6619436-3 (Version None)
Quarter: 2010Q1

REPORT INFORMATION
  Report Type: 
  Country: None (occurrence: None)
  Receive Date: 20100309
  Receipt Date: 20100223
  Transmission Date: 20100710
  Serious: Yes (Other)
  Sender: FDA-Public Use
  Company Number: DE-RANBAXY-2009RR-30272

PATIENT

DRUGS (2)
  1. CEFACLOR BASICS 250 MG TS [Suspect]
     Indication: BACTERIAL INFECTION
     Dosage: UNK
     Route: 048
  2. CEFACLOR BASICS 250 MG TS [Suspect]
     Indication: PNEUMONIA

REACTIONS (1)
  - BODY TEMPERATURE INCREASED [None]
